FAERS Safety Report 20054621 (Version 3)
Quarter: 2022Q1

REPORT INFORMATION
  Report Type: Spontaneous
  Country: FR (occurrence: FR)
  Receive Date: 20211110
  Receipt Date: 20220223
  Transmission Date: 20220423
  Serious: Yes (Hospitalization)
  Sender: FDA-Public Use
  Company Number: FR-FRESENIUS KABI-FK202111555

PATIENT
  Age: 34 Year
  Sex: Male
  Weight: 64 kg

DRUGS (10)
  1. IRINOTECAN HYDROCHLORIDE [Suspect]
     Active Substance: IRINOTECAN HYDROCHLORIDE
     Indication: Hepatic cancer
     Dosage: CURE 1, DAY 1
  2. IRINOTECAN HYDROCHLORIDE [Suspect]
     Active Substance: IRINOTECAN HYDROCHLORIDE
     Indication: Pancreatic carcinoma metastatic
     Dosage: 180 MG/M2, CYCLIC
     Route: 042
     Dates: start: 20210115, end: 20210505
  3. IRINOTECAN HYDROCHLORIDE [Suspect]
     Active Substance: IRINOTECAN HYDROCHLORIDE
     Dosage: AT CURE 3 IN FIRST TREATMENT, INFUSION
     Route: 042
  4. IRINOTECAN HYDROCHLORIDE [Suspect]
     Active Substance: IRINOTECAN HYDROCHLORIDE
     Dosage: AT CURE 4 OVER 3 HOURS
     Route: 042
  5. LEUCOVORIN CALCIUM [Suspect]
     Active Substance: LEUCOVORIN CALCIUM
     Indication: Hepatic cancer
     Dosage: CURE 1, DAY 1
  6. FLUOROURACIL [Suspect]
     Active Substance: FLUOROURACIL
     Indication: Hepatic cancer
     Dosage: CURE 1, DAY 1
  7. OXALIPLATIN [Concomitant]
     Active Substance: OXALIPLATIN
     Indication: Hepatic cancer
     Dosage: CURE 1, DAY 1
  8. OXALIPLATIN [Concomitant]
     Active Substance: OXALIPLATIN
     Dosage: CURE 2DOSE WAS REDUCED IN -20 PERCENT AT CURE 2 AND THE ADMINISTRATION WAS OVER 4 HOURS
  9. OXALIPLATIN [Concomitant]
     Active Substance: OXALIPLATIN
     Dosage: AT CURE 3 AT -20 PERCENT OVER 4 HOURS
  10. OXALIPLATIN [Concomitant]
     Active Substance: OXALIPLATIN
     Dosage: AT CURE 4 OVER 2 HOURS

REACTIONS (2)
  - Dysarthria [Recovered/Resolved]
  - Vision blurred [Recovered/Resolved]

NARRATIVE: CASE EVENT DATE: 20210115
